FAERS Safety Report 16649849 (Version 1)
Quarter: 2019Q3

REPORT INFORMATION
  Report Type: Spontaneous
  Country: MX (occurrence: MX)
  Receive Date: 20190731
  Receipt Date: 20190731
  Transmission Date: 20191004
  Serious: Yes (Other)
  Sender: FDA-Public Use
  Company Number: MX-BRISTOL-MYERS SQUIBB COMPANY-BMS-2019-074896

PATIENT
  Sex: Female

DRUGS (1)
  1. ORENCIA [Suspect]
     Active Substance: ABATACEPT
     Indication: RHEUMATOID ARTHRITIS
     Dosage: INFORMATION UNAVAILABLE
     Route: 065

REACTIONS (5)
  - Ecchymosis [Unknown]
  - Thrombocytopenia [Unknown]
  - Increased tendency to bruise [Unknown]
  - Alopecia [Unknown]
  - Dry skin [Unknown]
